FAERS Safety Report 7407399-2 (Version None)
Quarter: 2011Q2

REPORT INFORMATION
  Report Type: 
  Country: None (occurrence: None)
  Receive Date: 20110411
  Receipt Date: 20110330
  Transmission Date: 20111010
  Serious: Yes (Hospitalization)
  Sender: FDA-Public Use
  Company Number: CH-RB-025252-11

PATIENT
  Age: 54 Year
  Sex: Female

DRUGS (14)
  1. PANTOPRAZOLE [Suspect]
     Indication: PRODUCT USED FOR UNKNOWN INDICATION
     Route: 048
     Dates: start: 20110219, end: 20110306
  2. NIMOTOP [Suspect]
     Route: 048
     Dates: start: 20110219, end: 20110304
  3. ERYTHROPOETIN [Concomitant]
     Indication: PRODUCT USED FOR UNKNOWN INDICATION
     Route: 058
  4. CONCOR [Concomitant]
     Route: 048
     Dates: end: 20110221
  5. DAFALGON [Suspect]
     Indication: PAIN
     Route: 048
     Dates: start: 20110219, end: 20110226
  6. CALCIUM CARBONATE [Concomitant]
     Indication: PRODUCT USED FOR UNKNOWN INDICATION
     Route: 048
  7. ENOXAPARIN [Suspect]
     Indication: PRODUCT USED FOR UNKNOWN INDICATION
     Route: 058
     Dates: start: 20110219
  8. CIPROXIN [Suspect]
     Indication: URINARY TRACT INFECTION
     Route: 048
     Dates: start: 20110224, end: 20110303
  9. TEMGESIC UNSPECIFIED [Suspect]
     Indication: PRODUCT USED FOR UNKNOWN INDICATION
     Route: 048
     Dates: start: 20110222, end: 20110301
  10. NIMOTOP [Suspect]
     Indication: SUBARACHNOID HAEMORRHAGE
     Route: 048
     Dates: start: 20110228
  11. PRAVASTATIN [Suspect]
     Indication: PRODUCT USED FOR UNKNOWN INDICATION
     Route: 048
     Dates: start: 20110221, end: 20110228
  12. CONCOR [Concomitant]
     Indication: SECONDARY HYPERTENSION
     Route: 048
     Dates: start: 20110227
  13. SODIUM BICARBONATE [Concomitant]
     Indication: PRODUCT USED FOR UNKNOWN INDICATION
     Route: 048
  14. DUPHALAC [Concomitant]
     Indication: PRODUCT USED FOR UNKNOWN INDICATION
     Route: 048
     Dates: start: 20110219

REACTIONS (4)
  - LIVER DISORDER [None]
  - CHOLESTATIC LIVER INJURY [None]
  - TRANSAMINASES INCREASED [None]
  - PANCREATIC ENZYMES INCREASED [None]
